FAERS Safety Report 13154141 (Version 1)
Quarter: 2017Q1

REPORT INFORMATION
  Report Type: Report from Study
  Country: US (occurrence: US)
  Receive Date: 20170126
  Receipt Date: 20170126
  Transmission Date: 20170428
  Serious: No
  Sender: FDA-Public Use
  Company Number: US-AMGEN-USASL2016118681

PATIENT
  Age: 66 Year
  Sex: Female

DRUGS (3)
  1. KYPROLIS [Suspect]
     Active Substance: CARFILZOMIB
     Indication: PLASMA CELL MYELOMA
     Dosage: ABOUT 4 MG, UNK
     Route: 065
     Dates: start: 201601
  2. DEXAMETHASONE. [Concomitant]
     Active Substance: DEXAMETHASONE
     Dosage: UNK
  3. POMALYST [Concomitant]
     Active Substance: POMALIDOMIDE
     Dosage: UNK

REACTIONS (5)
  - Nasopharyngitis [Unknown]
  - Hypersensitivity [Unknown]
  - Weight increased [Unknown]
  - Ocular hyperaemia [Unknown]
  - Alopecia [Unknown]

NARRATIVE: CASE EVENT DATE: 2016
